FAERS Safety Report 9705546 (Version 1)
Quarter: 2013Q4

REPORT INFORMATION
  Report Type: Report from Study
  Country: US (occurrence: US)
  Receive Date: 20131122
  Receipt Date: 20131122
  Transmission Date: 20140711
  Serious: Yes (Hospitalization)
  Sender: FDA-Public Use
  Company Number: US-ABBVIE-13P-163-1170120-00

PATIENT
  Age: 25 Year
  Sex: Female
  Weight: 113.5 kg

DRUGS (4)
  1. LUPRON DEPOT [Suspect]
     Indication: ENDOMETRIOSIS
     Route: 030
     Dates: start: 201308
  2. IRON [Concomitant]
     Indication: MINERAL SUPPLEMENTATION
     Route: 048
  3. ALBUTEROL [Concomitant]
     Indication: ASTHMA
     Route: 055
  4. ALPRAZOLAM [Concomitant]
     Indication: ANXIETY
     Route: 048

REACTIONS (2)
  - Mental disorder [Recovered/Resolved]
  - Depression [Recovering/Resolving]
